FAERS Safety Report 8737836 (Version 2)
Quarter: 2013Q4

REPORT INFORMATION
  Report Type: Report from Study
  Country: JP (occurrence: JP)
  Receive Date: 20120822
  Receipt Date: 20131101
  Transmission Date: 20140711
  Serious: Yes (Hospitalization)
  Sender: FDA-Public Use
  Company Number: JP-MERCK-1208JPN006828

PATIENT
  Age: 72 Year
  Sex: Male
  Weight: 44 kg

DRUGS (12)
  1. PEGINTRON [Suspect]
     Indication: HEPATITIS C
     Dosage: 1.5MCG/KG/WEEK
     Route: 058
     Dates: start: 20120202, end: 20120719
  2. REBETOL [Suspect]
     Indication: HEPATITIS C
     Dosage: 600 MG, ONCE
     Route: 048
     Dates: start: 20120202, end: 20120215
  3. REBETOL [Suspect]
     Indication: HEPATITIS C
     Dosage: 400 MG, ONCE
     Route: 048
     Dates: start: 20120216, end: 20120222
  4. REBETOL [Suspect]
     Route: 048
     Dates: start: 20120223, end: 20120425
  5. REBETOL [Suspect]
     Route: 048
     Dates: start: 20120426, end: 20120501
  6. REBETOL [Suspect]
     Route: 048
     Dates: start: 20120502, end: 20120516
  7. REBETOL [Suspect]
     Route: 048
     Dates: start: 20120517, end: 20120620
  8. REBETOL [Suspect]
     Route: 048
     Dates: start: 20120621, end: 20120719
  9. TELAVIC [Suspect]
     Indication: HEPATITIS C
     Dosage: 1500 MG, ONCE
     Route: 048
     Dates: start: 20120202, end: 20120426
  10. ALOSITOL [Concomitant]
     Indication: HYPERURICAEMIA
     Dosage: 50 MG, ONCE
     Route: 048
     Dates: start: 20120216, end: 20120307
  11. ALOSITOL [Concomitant]
     Route: 048
     Dates: start: 20120308, end: 20120405
  12. [THERAPY UNSPECIFIED] [Concomitant]
     Dosage: ONE-TWICE/DAY
     Route: 061

REACTIONS (1)
  - Rash papular [Recovering/Resolving]
